FAERS Safety Report 15034385 (Version 1)
Quarter: 2018Q3

REPORT INFORMATION
  Report Type: Spontaneous
  Country: US (occurrence: US)
  Receive Date: 20180620
  Receipt Date: 20180620
  Transmission Date: 20181010
  Serious: No
  Sender: FDA-Public Use
  Company Number: US-TEVA-788376ACC

PATIENT

DRUGS (1)
  1. KETOCONAZOLE CREAM 2 PERCENT [Suspect]
     Active Substance: KETOCONAZOLE
     Indication: TINEA PEDIS

REACTIONS (5)
  - Skin exfoliation [Unknown]
  - Condition aggravated [None]
  - Blister [Unknown]
  - Pruritus [Unknown]
  - Pruritus [None]
